FAERS Safety Report 10513439 (Version 2)
Quarter: 2014Q4

REPORT INFORMATION
  Report Type: Spontaneous
  Country: JP (occurrence: JP)
  Receive Date: 20141013
  Receipt Date: 20141020
  Transmission Date: 20150528
  Serious: Yes (Life-Threatening)
  Sender: FDA-Public Use
  Company Number: JP-SA-2014SA137966

PATIENT
  Age: 63 Year
  Sex: Male
  Weight: 42 kg

DRUGS (8)
  1. MAINTATE [Concomitant]
     Active Substance: BISOPROLOL FUMARATE
     Dates: start: 20140625, end: 20140722
  2. TAKEPRON [Concomitant]
     Active Substance: LANSOPRAZOLE
  3. WARFARIN [Concomitant]
     Active Substance: WARFARIN
  4. FABRAZYME [Suspect]
     Active Substance: AGALSIDASE BETA
     Indication: FABRY^S DISEASE
     Route: 041
     Dates: start: 20140403
  5. REGPARA [Concomitant]
     Active Substance: CINACALCET HYDROCHLORIDE
  6. ARTIST [Concomitant]
     Active Substance: CARVEDILOL
     Dates: start: 20140312, end: 20140624
  7. THYRADIN-S [Concomitant]
     Active Substance: LEVOTHYROXINE
  8. TEGRETOL [Concomitant]
     Active Substance: CARBAMAZEPINE
     Indication: PAIN IN EXTREMITY
     Route: 048
     Dates: start: 20140212, end: 20140612

REACTIONS (3)
  - Altered state of consciousness [Recovered/Resolved]
  - Seizure [Recovered/Resolved]
  - Respiratory depression [Recovered/Resolved]

NARRATIVE: CASE EVENT DATE: 20140625
